FAERS Safety Report 20365460 (Version 4)
Quarter: 2022Q1

REPORT INFORMATION
  Report Type: Spontaneous
  Country: JP (occurrence: JP)
  Receive Date: 20220122
  Receipt Date: 20220309
  Transmission Date: 20220424
  Serious: Yes (Other)
  Sender: FDA-Public Use
  Company Number: JP-JNJJAKJPN-J22001650

PATIENT
  Age: 65 Year
  Sex: Male

DRUGS (6)
  1. INVEGA [Suspect]
     Active Substance: PALIPERIDONE
     Indication: Schizophrenia
     Route: 048
     Dates: start: 20120808
  2. RISPERDAL [Suspect]
     Active Substance: RISPERIDONE
     Indication: Schizophrenia
     Dosage: IN THE MORNING AND EVENING,P.R.N
     Route: 048
     Dates: start: 20130130
  3. RISPERDAL [Suspect]
     Active Substance: RISPERIDONE
     Dosage: 3TIMES,P.R.N
     Route: 048
     Dates: start: 20130508
  4. RISPERDAL [Suspect]
     Active Substance: RISPERIDONE
     Dosage: IN THE MORNING AND EVENING,P.R.N
     Route: 048
     Dates: start: 20130821
  5. RISPERDAL [Suspect]
     Active Substance: RISPERIDONE
     Dosage: P.R.N
     Route: 048
     Dates: start: 20130901, end: 20130901
  6. BLONANSERIN [Concomitant]
     Active Substance: BLONANSERIN
     Indication: Schizophrenia
     Route: 048
     Dates: start: 20150313

REACTIONS (4)
  - Cerebellar tumour [Recovered/Resolved with Sequelae]
  - Dysarthria [Unknown]
  - Inappropriate schedule of product administration [Unknown]
  - Off label use [Unknown]

NARRATIVE: CASE EVENT DATE: 20130130
